FAERS Safety Report 5360517-2 (Version None)
Quarter: 2007Q2

REPORT INFORMATION
  Report Type: 
  Country: None (occurrence: None)
  Receive Date: 20070618
  Receipt Date: 20070608
  Transmission Date: 20071010
  Serious: Yes (Death, Hospitalization)
  Sender: FDA-Public Use
  Company Number: B0475349A

PATIENT
  Age: 70 Year
  Sex: Female

DRUGS (12)
  1. AUGMENTIN '125' [Suspect]
     Indication: PNEUMONIA BACTERIAL
     Dosage: 1.2G TWICE PER DAY
     Route: 042
     Dates: start: 20070325, end: 20070326
  2. TAZOBAC [Suspect]
     Indication: PNEUMONIA BACTERIAL
     Dosage: 4.5G THREE TIMES PER DAY
     Route: 042
     Dates: start: 20070326, end: 20070404
  3. TRIATEC [Suspect]
     Dosage: 1.25MG PER DAY
     Route: 048
     Dates: start: 20070331, end: 20070413
  4. DAFALGAN [Suspect]
     Dosage: 1G FOUR TIMES PER DAY
     Route: 048
     Dates: start: 20070406, end: 20070413
  5. ZOFRAN [Suspect]
     Dosage: 4MG THREE TIMES PER DAY
     Route: 065
     Dates: start: 20070408, end: 20070412
  6. NEXIUM [Suspect]
     Dosage: 40MG PER DAY
     Route: 048
     Dates: start: 20070408, end: 20070411
  7. DURAGESIC-100 [Concomitant]
     Route: 062
  8. HALDOL [Concomitant]
     Dosage: 4MG TWICE PER DAY
     Route: 048
  9. SERESTA [Concomitant]
     Dosage: 15MG PER DAY
     Route: 048
  10. FRAGMIN [Concomitant]
     Route: 058
     Dates: start: 20070325
  11. TORSEMIDE [Concomitant]
     Dosage: 5MG PER DAY
     Route: 048
     Dates: start: 20070330
  12. K CL TAB [Concomitant]
     Route: 048
     Dates: start: 20070327

REACTIONS (10)
  - ALANINE AMINOTRANSFERASE INCREASED [None]
  - ASPARTATE AMINOTRANSFERASE INCREASED [None]
  - BLOOD ALKALINE PHOSPHATASE INCREASED [None]
  - BLOOD BILIRUBIN INCREASED [None]
  - CARDIAC FAILURE ACUTE [None]
  - CHOLESTASIS [None]
  - LYMPHANGIOSIS CARCINOMATOSA [None]
  - METASTASES TO BONE [None]
  - METASTASES TO LIVER [None]
  - SINUS TACHYCARDIA [None]
